FAERS Safety Report 10784394 (Version 1)
Quarter: 2015Q1

REPORT INFORMATION
  Report Type: Spontaneous
  Country: KP (occurrence: KP)
  Receive Date: 20150211
  Receipt Date: 20150211
  Transmission Date: 20150721
  Serious: Yes (Other)
  Sender: FDA-Public Use
  Company Number: KP-CIPLA LTD.-2015KP01149

PATIENT

DRUGS (4)
  1. CISPLATIN. [Suspect]
     Active Substance: CISPLATIN
     Indication: NON-SMALL CELL LUNG CANCER STAGE III
     Dosage: 50 MG/M2/DAY ON DAY 1, 8, 29 AND 36
  2. RADIOTHERAPY [Suspect]
     Active Substance: RADIATION THERAPY
     Indication: NON-SMALL CELL LUNG CANCER STAGE III
     Dosage: 66 GY RADIATION
  3. ETOPOSIDE. [Suspect]
     Active Substance: ETOPOSIDE
     Indication: NON-SMALL CELL LUNG CANCER STAGE III
     Dosage: 50 MG/M2/DAY ON DAYS 1 TO 5 AND 29 TO 33
  4. IRINOTECAN [Suspect]
     Active Substance: IRINOTECAN
     Indication: NON-SMALL CELL LUNG CANCER STAGE III
     Dosage: 80 MG/M2  ON DAY 1 AND DAY 8 OF EACH CYCLE

REACTIONS (1)
  - Neuropathy peripheral [Unknown]
